FAERS Safety Report 14474755 (Version 4)
Quarter: 2018Q2

REPORT INFORMATION
  Report Type: Spontaneous
  Country: US (occurrence: US)
  Receive Date: 20180201
  Receipt Date: 20180504
  Transmission Date: 20180711
  Serious: Yes (Disabling, Other)
  Sender: FDA-Public Use
  Company Number: US-PFIZER INC-2018038617

PATIENT
  Age: 25 Year
  Sex: Male
  Weight: 86.17 kg

DRUGS (5)
  1. PRISTIQ EXTENDED-RELEASE [Suspect]
     Active Substance: DESVENLAFAXINE SUCCINATE
     Indication: ANXIETY
     Dosage: 50 MG, DAILY
     Route: 048
     Dates: start: 20170904, end: 201801
  2. PRISTIQ EXTENDED-RELEASE [Suspect]
     Active Substance: DESVENLAFAXINE SUCCINATE
     Dosage: 25 MG, UNK (HALF DOSES BY SCORING HIS 50 MG TABLET)
     Dates: start: 201801
  3. PRISTIQ EXTENDED-RELEASE [Suspect]
     Active Substance: DESVENLAFAXINE SUCCINATE
     Dosage: 50 MG, DAILY
     Route: 048
  4. ALPRAZOLAM. [Concomitant]
     Active Substance: ALPRAZOLAM
     Dosage: UNK
     Dates: start: 201801
  5. PRISTIQ EXTENDED-RELEASE [Suspect]
     Active Substance: DESVENLAFAXINE SUCCINATE
     Indication: DEPRESSION
     Dosage: 50 MG, DAILY
     Route: 048
     Dates: start: 2011, end: 20170902

REACTIONS (28)
  - Drug dependence [Unknown]
  - Intentional product misuse [Unknown]
  - Pyrexia [Unknown]
  - Withdrawal syndrome [Unknown]
  - Feeling jittery [Recovered/Resolved]
  - Abdominal discomfort [Recovered/Resolved]
  - Diarrhoea [Unknown]
  - Drug dose omission [Unknown]
  - Wrong technique in product usage process [Unknown]
  - Anxiety [Recovered/Resolved]
  - Thinking abnormal [Unknown]
  - Headache [Recovered/Resolved]
  - Fear [Unknown]
  - Lethargy [Unknown]
  - Abdominal pain [Unknown]
  - Weight decreased [Not Recovered/Not Resolved]
  - Decreased appetite [Unknown]
  - Impaired work ability [Unknown]
  - Influenza [Unknown]
  - Nausea [Unknown]
  - Panic attack [Unknown]
  - Confusional state [Unknown]
  - Paraesthesia [Unknown]
  - Vomiting [Unknown]
  - Chills [Unknown]
  - Gait disturbance [Unknown]
  - Crying [Unknown]
  - Communication disorder [Unknown]

NARRATIVE: CASE EVENT DATE: 20170902
